FAERS Safety Report 4271969-3 (Version None)
Quarter: 2004Q1

REPORT INFORMATION
  Report Type: 
  Country: None (occurrence: None)
  Receive Date: 20040115
  Receipt Date: 20020218
  Transmission Date: 20041129
  Serious: Yes (Hospitalization, Other)
  Sender: FDA-Public Use
  Company Number: US-BRISTOL-MYERS SQUIBB COMPANY-11732658

PATIENT
  Age: 69 Year
  Sex: Male

DRUGS (5)
  1. ATORVASTATIN [Suspect]
     Dosage: MOST RECENT DOSE PRIOR TO EVENT WAS ON 20-NOV-2001.
     Route: 048
     Dates: start: 20010609
  2. GATIFLOXACIN [Suspect]
     Dosage: MOST RECENT DOSE PRIOR TO EVENT WAS ON 20-NOV-2001.
     Route: 048
     Dates: start: 20010622
  3. ASPIRIN TAB [Concomitant]
     Route: 048
     Dates: start: 20010608
  4. LOPRESSOR [Concomitant]
     Route: 048
     Dates: start: 20010608
  5. MONOPRIL [Concomitant]
     Route: 048
     Dates: start: 20010608

REACTIONS (2)
  - HYPERGLYCAEMIC HYPEROSMOLAR NONKETOTIC SYNDROME [None]
  - HYPONATRAEMIA [None]
